FAERS Safety Report 18382394 (Version 1)
Quarter: 2020Q4

REPORT INFORMATION
  Report Type: Spontaneous
  Country: CA (occurrence: CA)
  Receive Date: 20201014
  Receipt Date: 20201014
  Transmission Date: 20210114
  Serious: Yes (Other)
  Sender: FDA-Public Use
  Company Number: CA-BAUSCH-BL-2020-029029

PATIENT
  Age: 72 Year
  Sex: Female
  Weight: 63 kg

DRUGS (2)
  1. DEXAMETHASONE. [Suspect]
     Active Substance: DEXAMETHASONE
     Indication: PLASMA CELL MYELOMA
     Route: 065
  2. VELCADE [Suspect]
     Active Substance: BORTEZOMIB
     Indication: PLASMA CELL MYELOMA
     Dosage: POWDER FOR SOLUTION INTRAVENOUS (SINGLE USE VIAL).
     Route: 065

REACTIONS (4)
  - Neuropathy peripheral [Unknown]
  - Tinnitus [Unknown]
  - Hypoacusis [Unknown]
  - Neurotoxicity [Unknown]
